FAERS Safety Report 7531960-8 (Version None)
Quarter: 2011Q2

REPORT INFORMATION
  Report Type: 
  Country: None (occurrence: None)
  Receive Date: 20110607
  Receipt Date: 20110607
  Transmission Date: 20111010
  Serious: Yes (Hospitalization)
  Sender: FDA-Public Use
  Company Number: None

PATIENT
  Age: 75 Year
  Sex: Male
  Weight: 96 kg

DRUGS (1)
  1. TERAZOSIN HCL [Suspect]
     Dosage: MG EVERY DAY PO
     Route: 048
     Dates: start: 20101013, end: 20101102

REACTIONS (5)
  - HEADACHE [None]
  - HYPOTENSION [None]
  - DIZZINESS [None]
  - NAUSEA [None]
  - SYNCOPE [None]
